FAERS Safety Report 4809667-7 (Version None)
Quarter: 2005Q4

REPORT INFORMATION
  Report Type: 
  Country: None (occurrence: None)
  Receive Date: 20051021
  Receipt Date: 20040429
  Transmission Date: 20060501
  Serious: Yes (Hospitalization)
  Sender: FDA-Public Use
  Company Number: USA020921310

PATIENT
  Age: 21 Year
  Sex: Female
  Weight: 44 kg

DRUGS (6)
  1. ZYPREXA [Suspect]
     Indication: ANXIETY
     Dosage: 2.5 MG/DAY
     Dates: start: 20020912
  2. ZYPREXA [Suspect]
     Indication: SLEEP DISORDER
     Dosage: 2.5 MG/DAY
     Dates: start: 20020912
  3. ZYPREXA [Suspect]
     Indication: THINKING ABNORMAL
     Dosage: 2.5 MG/DAY
     Dates: start: 20020912
  4. WELLBUTRIN [Concomitant]
  5. WELLBUTRIN SR [Concomitant]
  6. PAXIL [Concomitant]

REACTIONS (2)
  - ANAEMIA [None]
  - CONVULSION [None]
